FAERS Safety Report 4409358-0 (Version None)
Quarter: 2004Q3

REPORT INFORMATION
  Report Type: 
  Country: None (occurrence: None)
  Receive Date: 20040723
  Receipt Date: 20040715
  Transmission Date: 20050211
  Serious: Yes (Other)
  Sender: FDA-Public Use
  Company Number: GB-JNJFOC-20040704506

PATIENT
  Age: 37 Year
  Sex: Female

DRUGS (2)
  1. IBUPROFEN [Suspect]
     Indication: PHARYNGOLARYNGEAL PAIN
     Dosage: 3 DAILY
     Dates: start: 20040624, end: 20040627
  2. DOTHIEPIN HYDROCHLORIDE [Concomitant]

REACTIONS (6)
  - BACK PAIN [None]
  - BLISTER [None]
  - DERMATITIS EXFOLIATIVE [None]
  - DYSPNOEA [None]
  - PRURITUS [None]
  - WHEEZING [None]
